FAERS Safety Report 17818100 (Version 1)
Quarter: 2020Q2

REPORT INFORMATION
  Report Type: Report from Study
  Country: US (occurrence: US)
  Receive Date: 20200522
  Receipt Date: 20200522
  Transmission Date: 20200714
  Serious: Yes (Death)
  Sender: FDA-Public Use
  Company Number: US-ASTRAZENECA-2020SE66877

PATIENT
  Age: 16388 Day
  Sex: Female

DRUGS (3)
  1. LYNPARZA [Suspect]
     Active Substance: OLAPARIB
     Indication: BREAST CANCER FEMALE
     Route: 048
     Dates: start: 20191126
  2. LYNPARZA [Suspect]
     Active Substance: OLAPARIB
     Indication: LOWER RESPIRATORY TRACT INFECTION
     Route: 048
     Dates: start: 20191126
  3. LYNPARZA [Suspect]
     Active Substance: OLAPARIB
     Indication: MALIGNANT HISTIOCYTOSIS
     Route: 048
     Dates: start: 20191126

REACTIONS (1)
  - Death [Fatal]

NARRATIVE: CASE EVENT DATE: 20200417
